FAERS Safety Report 13214353 (Version 1)
Quarter: 2017Q1

REPORT INFORMATION
  Report Type: Spontaneous
  Country: FR (occurrence: FR)
  Receive Date: 20170210
  Receipt Date: 20170210
  Transmission Date: 20170428
  Serious: Yes (Hospitalization)
  Sender: FDA-Public Use
  Company Number: FR-PFIZER INC-2017050324

PATIENT
  Age: 62 Year
  Sex: Male

DRUGS (9)
  1. SPIRIVA [Concomitant]
     Active Substance: TIOTROPIUM BROMIDE MONOHYDRATE
     Dosage: 1 DF, DAILY
     Route: 055
  2. PARACETAMOL [Concomitant]
     Active Substance: ACETAMINOPHEN
     Dosage: UNK
  3. CLOMIPRAMINE [Concomitant]
     Active Substance: CLOMIPRAMINE
     Dosage: 75 MG, DAILY
  4. CORTANCYL [Suspect]
     Active Substance: PREDNISONE
     Indication: COLITIS ULCERATIVE
     Dosage: FLUCTUATING DOSAGE FROM 9 TO 100 MG DAILY
     Route: 048
     Dates: start: 201607, end: 201701
  5. SALAZOPYRINE [Suspect]
     Active Substance: SULFASALAZINE
     Indication: COLITIS ULCERATIVE
     Dosage: AT INCREASING DOSAGE (1 TO 4 TABLETS DAILY)
     Route: 048
     Dates: start: 20161012, end: 201612
  6. ONBREZ [Concomitant]
     Active Substance: INDACATEROL
     Dosage: 300 UG, DAILY
  7. TAMSULOSIN [Concomitant]
     Active Substance: TAMSULOSIN
     Dosage: 0.4 MG, DAILY
  8. TRAMADOL. [Concomitant]
     Active Substance: TRAMADOL
     Dosage: 200 MG, DAILY
  9. ZOLPIDEM [Concomitant]
     Active Substance: ZOLPIDEM\ZOLPIDEM TARTRATE
     Dosage: 5 MG, DAILY

REACTIONS (2)
  - Ecchymosis [Recovered/Resolved]
  - Myalgia [Recovering/Resolving]

NARRATIVE: CASE EVENT DATE: 201610
